FAERS Safety Report 4297308-X (Version None)
Quarter: 2004Q1

REPORT INFORMATION
  Report Type: 
  Country: None (occurrence: None)
  Receive Date: 20040213
  Receipt Date: 20040128
  Transmission Date: 20041129
  Serious: Yes (Death)
  Sender: FDA-Public Use
  Company Number: 2004-DE-00456GD

PATIENT
  Age: 73 Year
  Sex: Female

DRUGS (5)
  1. CYCLOPHOSPHAMIDE [Suspect]
     Indication: PANNICULITIS
  2. PIRARUBICIN (PIRARUBICIN) [Suspect]
     Indication: PANNICULITIS
  3. VINCRISTINE [Suspect]
     Indication: PANNICULITIS
  4. PREDNISOLONE [Suspect]
     Indication: PANNICULITIS
  5. ETOPOSIDE [Suspect]
     Indication: PANNICULITIS

REACTIONS (3)
  - DRUG EFFECT DECREASED [None]
  - PNEUMONIA [None]
  - RESPIRATORY FAILURE [None]
